FAERS Safety Report 12581921 (Version 1)
Quarter: 2016Q3

REPORT INFORMATION
  Report Type: Spontaneous
  Country: US (occurrence: US)
  Receive Date: 20160722
  Receipt Date: 20160722
  Transmission Date: 20161109
  Serious: Yes (Hospitalization, Other)
  Sender: FDA-Public Use
  Company Number: US-STRIDES ARCOLAB LIMITED-2016SP003254

PATIENT

DRUGS (2)
  1. CICLOSPORIN [Suspect]
     Active Substance: CYCLOSPORINE
     Indication: IMMUNOSUPPRESSION
     Dosage: UNK
  2. MYCOPHENOLATE MOFETIL. [Suspect]
     Active Substance: MYCOPHENOLATE MOFETIL
     Indication: IMMUNOSUPPRESSION
     Dosage: UNK

REACTIONS (9)
  - Oliguria [Recovered/Resolved]
  - Pyuria [Recovered/Resolved]
  - Cystitis [Recovered/Resolved]
  - Penile discharge [Recovered/Resolved]
  - Lethargy [Recovered/Resolved]
  - Haemorrhage urinary tract [Recovered/Resolved]
  - End stage renal disease [Unknown]
  - Pyrexia [Recovered/Resolved]
  - Bacterial infection [Recovered/Resolved]
